FAERS Safety Report 5390708-6 (Version None)
Quarter: 2007Q3

REPORT INFORMATION
  Report Type: 
  Country: None (occurrence: None)
  Receive Date: 20070718
  Receipt Date: 20070710
  Transmission Date: 20080115
  Serious: Yes (Other)
  Sender: FDA-Public Use
  Company Number: US-GENENTECH-091433

PATIENT
  Age: 31 Year
  Sex: Male

DRUGS (6)
  1. NUTROPIN [Suspect]
     Indication: GROWTH HORMONE DEFICIENCY
     Route: 058
  2. NUTROPIN [Suspect]
     Route: 058
  3. NUTROPIN [Suspect]
     Route: 058
  4. PHENTERMINE HYDROCHLORIDE [Concomitant]
  5. FENFLURAMINE [Concomitant]
  6. PEMOLINE [Concomitant]

REACTIONS (10)
  - ANEURYSM [None]
  - HYPERTENSION [None]
  - MACULAR OEDEMA [None]
  - PERICARDITIS [None]
  - RETINAL DEPIGMENTATION [None]
  - RETINAL EXUDATES [None]
  - RETINAL HAEMORRHAGE [None]
  - RETINOPATHY [None]
  - VISION BLURRED [None]
  - VISUAL ACUITY REDUCED [None]
